FAERS Safety Report 6697792-8 (Version None)
Quarter: 2010Q2

REPORT INFORMATION
  Report Type: 
  Country: None (occurrence: None)
  Receive Date: 20100423
  Receipt Date: 20100416
  Transmission Date: 20101027
  Serious: Yes (Disabling, Other)
  Sender: FDA-Public Use
  Company Number: TPG2010A00304

PATIENT
  Sex: Male

DRUGS (1)
  1. ACTOS [Suspect]
     Indication: DRUG USE FOR UNKNOWN INDICATION
     Dosage: PER ORAL
     Route: 048

REACTIONS (5)
  - BLOOD GLUCOSE INCREASED [None]
  - CARDIAC FAILURE [None]
  - DIALYSIS [None]
  - PULMONARY OEDEMA [None]
  - RENAL FAILURE [None]
